FAERS Safety Report 14776286 (Version 1)
Quarter: 2018Q2

REPORT INFORMATION
  Report Type: Spontaneous
  Country: US (occurrence: US)
  Receive Date: 20180418
  Receipt Date: 20180418
  Transmission Date: 20180711
  Serious: No
  Sender: FDA-Public Use
  Company Number: PHEH2018US014884

PATIENT
  Sex: Female

DRUGS (1)
  1. TAFINLAR [Suspect]
     Active Substance: DABRAFENIB MESYLATE
     Indication: LUNG NEOPLASM MALIGNANT
     Dosage: 150 MG, BID
     Route: 048
     Dates: start: 20180403, end: 20180403

REACTIONS (1)
  - Pyrexia [Unknown]

NARRATIVE: CASE EVENT DATE: 20180403
